FAERS Safety Report 20756879 (Version 1)
Quarter: 2022Q2

REPORT INFORMATION
  Report Type: Spontaneous
  Country: US (occurrence: US)
  Receive Date: 20220427
  Receipt Date: 20220427
  Transmission Date: 20220721
  Serious: No
  Sender: FDA-Public Use
  Company Number: US-PFIZER INC-202101505648

PATIENT
  Age: 60 Year
  Sex: Female
  Weight: 49.9 kg

DRUGS (2)
  1. CHANTIX [Suspect]
     Active Substance: VARENICLINE TARTRATE
     Dosage: 0.5 DF
     Dates: start: 20200824
  2. CHANTIX [Suspect]
     Active Substance: VARENICLINE TARTRATE
     Dosage: 1 DF, 2X/DAY
     Dates: start: 2020

REACTIONS (4)
  - Nausea [Recovered/Resolved]
  - Chromaturia [Recovering/Resolving]
  - Abdominal pain upper [Not Recovered/Not Resolved]
  - Recalled product administered [Unknown]

NARRATIVE: CASE EVENT DATE: 20200101
